FAERS Safety Report 10243756 (Version 1)
Quarter: 2014Q2

REPORT INFORMATION
  Report Type: Spontaneous
  Country: US (occurrence: None)
  Receive Date: 20140616
  Receipt Date: 20140616
  Transmission Date: 20141212
  Serious: Yes (Other)
  Sender: FDA-Public Use
  Company Number: None

PATIENT
  Age: 59 Year
  Sex: Male
  Weight: 117.94 kg

DRUGS (1)
  1. DYMISTA 50 MCG MCKEASSON [Suspect]
     Indication: HYPERSENSITIVITY
     Dosage: 2 SPRAYS, EVERY OTHER DAY, NASAL
     Route: 045
     Dates: start: 20140525, end: 20140528

REACTIONS (5)
  - Aphonia [None]
  - Pharyngeal erythema [None]
  - Upper respiratory tract infection [None]
  - Throat irritation [None]
  - Tinnitus [None]
